FAERS Safety Report 8214476-5 (Version None)
Quarter: 2012Q1

REPORT INFORMATION
  Report Type: 
  Country: None (occurrence: None)
  Receive Date: 20120316
  Receipt Date: 20120307
  Transmission Date: 20120608
  Serious: Yes (Hospitalization, Other)
  Sender: FDA-Public Use
  Company Number: MT-COVIDIEN/TYCO HEALTHCARE/MALLINCKRODT-T201201006

PATIENT
  Age: 58 Year
  Sex: Female

DRUGS (1)
  1. SODIUM IODIDE I 131 [Suspect]
     Indication: BASEDOW'S DISEASE
     Dosage: UNK

REACTIONS (3)
  - HYPOTHYROIDISM [None]
  - STRESS CARDIOMYOPATHY [None]
  - TORSADE DE POINTES [None]
